FAERS Safety Report 9017102 (Version 2)
Quarter: 2014Q1

REPORT INFORMATION
  Report Type: Report from Study
  Country: BD (occurrence: BD)
  Receive Date: 20130117
  Receipt Date: 20140124
  Transmission Date: 20141002
  Serious: Yes (Death)
  Sender: FDA-Public Use
  Company Number: PHHY2013BD003581

PATIENT
  Age: 103 Year
  Sex: Male

DRUGS (2)
  1. EXELON PATCH [Suspect]
     Indication: DEMENTIA
     Dosage: 4.6 MG, DAILY
     Route: 062
     Dates: start: 201201
  2. RIVAMER [Concomitant]
     Indication: DEMENTIA
     Dosage: 1.5 MG, UNK
     Route: 048

REACTIONS (2)
  - Cerebrovascular accident [Fatal]
  - Dyspnoea [Unknown]
